FAERS Safety Report 5202474-5 (Version None)
Quarter: 2006Q4

REPORT INFORMATION
  Report Type: 
  Country: None (occurrence: None)
  Receive Date: 20061010
  Receipt Date: 20060710
  Transmission Date: 20070319
  Serious: Yes (Life-Threatening)
  Sender: FDA-Public Use
  Company Number: 2006P1000374

PATIENT
  Age: 75 Year
  Sex: Male
  Weight: 75 kg

DRUGS (7)
  1. RETEPLASE (RETEPLASE) [Suspect]
     Indication: ACUTE MYOCARDIAL INFARCTION
     Dosage: IV
     Route: 042
     Dates: start: 20060704, end: 20060704
  2. ABCIXIMAB (ABCIXIMAB) [Suspect]
     Indication: ACUTE MYOCARDIAL INFARCTION
     Dosage: IV
     Route: 042
     Dates: start: 20060704
  3. NEFAZODONE HCL [Concomitant]
  4. IRBESARTAN [Concomitant]
  5. HEPARIN [Concomitant]
  6. LYSINE [Concomitant]
  7. PANTOPRAZOLE SODIUM [Concomitant]

REACTIONS (1)
  - VENTRICULAR FIBRILLATION [None]
